FAERS Safety Report 7583972-6 (Version None)
Quarter: 2011Q2

REPORT INFORMATION
  Report Type: 
  Country: None (occurrence: None)
  Receive Date: 20110630
  Receipt Date: 20110613
  Transmission Date: 20111010
  Serious: No
  Sender: FDA-Public Use
  Company Number: US-B.I. PHARMACEUTICALS,INC./RIDGEFIELD-2011-BP-15276BP

PATIENT
  Sex: Male

DRUGS (1)
  1. SPIRIVA [Suspect]

REACTIONS (1)
  - BENIGN PROSTATIC HYPERPLASIA [None]
